FAERS Safety Report 7756200-6 (Version None)
Quarter: 2011Q3

REPORT INFORMATION
  Report Type: 
  Country: None (occurrence: None)
  Receive Date: 20110916
  Receipt Date: 20110909
  Transmission Date: 20111222
  Serious: No
  Sender: FDA-Public Use
  Company Number: US-PFIZER INC-2011189331

PATIENT
  Sex: Male

DRUGS (2)
  1. ZYVOX [Suspect]
     Dosage: UNK
     Route: 048
  2. ZYVOX [Suspect]
     Dosage: UNK
     Route: 042

REACTIONS (2)
  - OEDEMA PERIPHERAL [None]
  - DRUG INEFFECTIVE [None]
